FAERS Safety Report 21298613 (Version 1)
Quarter: 2022Q3

REPORT INFORMATION
  Report Type: Spontaneous
  Country: US (occurrence: None)
  Receive Date: 20220904
  Receipt Date: 20220904
  Transmission Date: 20221027
  Serious: Yes (Other)
  Sender: FDA-Public Use
  Company Number: None

PATIENT
  Age: 38 Year
  Sex: Male
  Weight: 150.75 kg

DRUGS (2)
  1. DICLOFENAC SODIUM [Suspect]
     Active Substance: DICLOFENAC SODIUM
     Indication: Arthritis
     Dosage: OTHER QUANTITY : 4 4.5 INCH STRIP;?FREQUENCY : TWICE A DAY;?
     Route: 061
     Dates: start: 20220818, end: 20220903
  2. Roman  Testosterone Support Ingredients include, Ashwagandha, zinc, m [Concomitant]

REACTIONS (2)
  - Ageusia [None]
  - Dysgeusia [None]

NARRATIVE: CASE EVENT DATE: 20220903
